FAERS Safety Report 4436965-1 (Version None)
Quarter: 2004Q3

REPORT INFORMATION
  Report Type: 
  Country: None (occurrence: None)
  Receive Date: 20040830
  Receipt Date: 20031015
  Transmission Date: 20050211
  Serious: No
  Sender: FDA-Public Use
  Company Number: US-GLAXOSMITHKLINE-A0430456A

PATIENT
  Sex: Female

DRUGS (1)
  1. BECONASE [Suspect]
     Indication: ILL-DEFINED DISORDER
     Route: 045

REACTIONS (1)
  - DRUG INEFFECTIVE [None]
